FAERS Safety Report 6616521-7 (Version None)
Quarter: 2010Q1

REPORT INFORMATION
  Report Type: 
  Country: None (occurrence: None)
  Receive Date: 20100223
  Receipt Date: 20100114
  Transmission Date: 20100710
  Serious: No
  Sender: FDA-Public Use
  Company Number: 003136

PATIENT
  Sex: Female
  Weight: 52.1 kg

DRUGS (8)
  1. CIMZIA [Suspect]
     Indication: CROHN'S DISEASE
     Dosage: SUBCUTANEOUS
     Route: 058
     Dates: start: 20090214
  2. IMURAN [Concomitant]
  3. SUCRALFATE [Concomitant]
  4. METOCLOPRAMIDE HYDROCHLORIDE [Concomitant]
  5. LISINOPRIL [Concomitant]
  6. OXYCODONE [Concomitant]
  7. ALPHAGAN [Concomitant]
  8. IRON [Concomitant]

REACTIONS (5)
  - ABDOMINAL PAIN UPPER [None]
  - BLOOD IRON [None]
  - DRUG INEFFECTIVE [None]
  - FATIGUE [None]
  - HAEMATOCHEZIA [None]
